FAERS Safety Report 6478515-4 (Version None)
Quarter: 2009Q4

REPORT INFORMATION
  Report Type: 
  Country: None (occurrence: None)
  Receive Date: 20091207
  Receipt Date: 20091127
  Transmission Date: 20100525
  Serious: Yes (Disabling)
  Sender: FDA-Public Use
  Company Number: AU-ASTRAZENECA-2009SE29222

PATIENT
  Age: 50 Year
  Sex: Female

DRUGS (4)
  1. CRESTOR [Suspect]
     Indication: METABOLIC DISORDER
     Route: 048
     Dates: start: 20090101, end: 20090122
  2. ACTONEL [Concomitant]
     Route: 048
  3. OROXINE [Concomitant]
     Route: 048
  4. OSTEVIT D [Concomitant]
     Route: 048

REACTIONS (2)
  - FLUID RETENTION [None]
  - RASH [None]
